FAERS Safety Report 14081298 (Version 1)
Quarter: 2017Q4

REPORT INFORMATION
  Report Type: Spontaneous
  Country: US (occurrence: None)
  Receive Date: 20171011
  Receipt Date: 20171011
  Transmission Date: 20180321
  Serious: No
  Sender: FDA-Public Use
  Company Number: None

PATIENT

DRUGS (2)
  1. ADRENALIN [Suspect]
     Active Substance: EPINEPHRINE
     Dosage: DOSAGE FORM - INJECTABLE?TYPE - MULTIPLE DOSE VIAL?SIZE 30 ML?ADM ROUTE - IM OR SC
     Route: 030
  2. ADRENALIN CHLORIDE SOLUTION EPINEPHRINE [Suspect]
     Active Substance: EPINEPHRINE
     Dosage: DOSAGE FORM - SOLUTION?TYPE - VIAL?SIZE - 30 ML
     Route: 045

REACTIONS (4)
  - Product selection error [None]
  - Product preparation error [None]
  - Drug dispensing error [None]
  - Product packaging confusion [None]
